FAERS Safety Report 8666645 (Version 4)
Quarter: 2013Q3

REPORT INFORMATION
  Report Type: Spontaneous
  Country: US (occurrence: US)
  Receive Date: 20120716
  Receipt Date: 20130920
  Transmission Date: 20140515
  Serious: Yes (Other)
  Sender: FDA-Public Use
  Company Number: US-PFIZER INC-2012166751

PATIENT
  Age: 60 Year
  Sex: Female
  Weight: 67.6 kg

DRUGS (20)
  1. PREMARIN [Suspect]
     Indication: HORMONE REPLACEMENT THERAPY
     Dosage: UNK
     Route: 067
     Dates: end: 2012
  2. PREMARIN [Suspect]
     Dosage: UNK
     Route: 067
     Dates: start: 2012
  3. PREMARIN [Suspect]
     Indication: HORMONE REPLACEMENT THERAPY
     Dosage: 1.25 MG, 1X/DAY
     Route: 048
     Dates: start: 1980, end: 2012
  4. PREMARIN [Suspect]
     Indication: BLOOD OESTROGEN DECREASED
     Dosage: 1.25 MG, 1X/DAY
     Route: 048
     Dates: start: 2012
  5. COUMADIN [Concomitant]
     Indication: ANTICOAGULANT THERAPY
     Dosage: 2 MG, DAILY
  6. BUMEX [Concomitant]
     Indication: FLUID RETENTION
     Dosage: 2 MG, 2X/DAY
  7. POTASSIUM [Concomitant]
     Indication: BLOOD POTASSIUM DECREASED
     Dosage: 80 MEQ, EVERY SIX HOURS
     Route: 048
  8. LISINOPRIL [Concomitant]
     Indication: CARDIAC DISORDER
     Dosage: 2.5 MG, 2X/DAY
  9. LORTAB [Concomitant]
     Indication: PAIN
     Dosage: 10/500, MG, EVERY SIX HOURS
  10. METFORMIN [Concomitant]
     Indication: DIABETES MELLITUS
     Dosage: 1000 MG, 2X/DAY
  11. PLAVIX [Concomitant]
     Indication: CARDIAC DISORDER
     Dosage: 75 MG, UNK
  12. LIPOSYN [Concomitant]
     Indication: BLOOD TRIGLYCERIDES ABNORMAL
     Dosage: 150 MG, UNK
  13. GEMFIBROZIL [Concomitant]
     Dosage: 600 MG, UNK
  14. METOPROLOL [Concomitant]
     Indication: CARDIAC DISORDER
     Dosage: 100 MG, 2X/DAY
  15. METOPROLOL [Concomitant]
     Indication: HYPERTENSION
  16. BENTYL [Concomitant]
     Indication: ABDOMINAL PAIN UPPER
     Dosage: 20 MG, 3X/DAY
  17. DILTIAZEM [Concomitant]
     Indication: FLUID RETENTION
     Dosage: 300 MG, DAILY
  18. DILTIAZEM [Concomitant]
     Indication: HYPERTENSION
  19. DILT-CD [Concomitant]
     Indication: HYPERTENSION
     Dosage: 300 MG, DAILY
     Route: 048
  20. TOPROL [Concomitant]
     Indication: HYPERTENSION
     Dosage: 200 MG, 2X/DAY

REACTIONS (11)
  - Cerebrovascular accident [Unknown]
  - Renal disorder [Unknown]
  - Blood disorder [Unknown]
  - Hot flush [Recovered/Resolved]
  - Panic attack [Unknown]
  - Decreased activity [Unknown]
  - Feeling hot [Unknown]
  - Hyperhidrosis [Unknown]
  - Feeling abnormal [Unknown]
  - Nervousness [Recovered/Resolved]
  - Insomnia [Recovered/Resolved]
